FAERS Safety Report 8326571-0 (Version None)
Quarter: 2012Q2

REPORT INFORMATION
  Report Type: 
  Country: None (occurrence: None)
  Receive Date: 20120501
  Receipt Date: 20120420
  Transmission Date: 20120825
  Serious: Yes (Hospitalization)
  Sender: FDA-Public Use
  Company Number: US-JNJFOC-20120402232

PATIENT
  Sex: Female
  Weight: 22 kg

DRUGS (10)
  1. DEPAKOTE [Concomitant]
  2. CONCERTA [Concomitant]
  3. HUMIRA [Concomitant]
     Dates: start: 20120210
  4. BUDESONIDE [Concomitant]
  5. PROTONIX [Concomitant]
  6. CLONIDINE [Concomitant]
  7. MESALAMINE [Concomitant]
     Route: 048
  8. ZOFRAN [Concomitant]
  9. PENICILLIN V POTASSIUM [Concomitant]
  10. INFLIXIMAB, RECOMBINANT [Suspect]
     Indication: INFLAMMATORY BOWEL DISEASE
     Route: 042
     Dates: start: 20110309, end: 20111215

REACTIONS (1)
  - GASTROENTERITIS [None]
